FAERS Safety Report 20949962 (Version 5)
Quarter: 2022Q3

REPORT INFORMATION
  Report Type: Spontaneous
  Country: US (occurrence: US)
  Receive Date: 20220613
  Receipt Date: 20220727
  Transmission Date: 20221027
  Serious: No
  Sender: FDA-Public Use
  Company Number: US-PFIZER INC-202200502215

PATIENT
  Age: 12 Year
  Sex: Male

DRUGS (3)
  1. GENOTROPIN [Suspect]
     Active Substance: SOMATROPIN
     Dosage: 1.1 MG, DAILY (7 DAYS A WEEK)
  2. GENOTROPIN [Suspect]
     Active Substance: SOMATROPIN
     Dosage: 1 MG, DAILY (ALTERNATE)
  3. GENOTROPIN [Suspect]
     Active Substance: SOMATROPIN
     Dosage: 1.2 MG, DAILY (ALTERNATE)

REACTIONS (4)
  - Product prescribing error [Unknown]
  - Drug dose omission by device [Unknown]
  - Device breakage [Unknown]
  - Device issue [Unknown]
